FAERS Safety Report 16100250 (Version 1)
Quarter: 2019Q1

REPORT INFORMATION
  Report Type: Report from Study
  Country: US (occurrence: US)
  Receive Date: 20190321
  Receipt Date: 20190321
  Transmission Date: 20190418
  Serious: No
  Sender: FDA-Public Use
  Company Number: PHEH2019US011821

PATIENT
  Sex: Female
  Weight: 90.25 kg

DRUGS (1)
  1. COSENTYX [Suspect]
     Active Substance: SECUKINUMAB
     Indication: PSORIATIC ARTHROPATHY
     Dosage: 150 MG/ML, QMO
     Route: 058
     Dates: start: 201810

REACTIONS (2)
  - Drug effect incomplete [Unknown]
  - Psoriasis [Not Recovered/Not Resolved]
